FAERS Safety Report 6170418-8 (Version None)
Quarter: 2009Q2

REPORT INFORMATION
  Report Type: 
  Country: None (occurrence: None)
  Receive Date: 20090428
  Receipt Date: 20090420
  Transmission Date: 20091009
  Serious: Yes (Other)
  Sender: FDA-Public Use
  Company Number: US-BAYER-200911248BCC

PATIENT
  Age: 16 Year
  Sex: Female
  Weight: 48 kg

DRUGS (1)
  1. ALEVE [Suspect]
     Indication: HEADACHE
     Route: 048
     Dates: start: 20090420

REACTIONS (5)
  - ABDOMINAL PAIN UPPER [None]
  - CARDIAC DISCOMFORT [None]
  - DIZZINESS [None]
  - HYPOAESTHESIA [None]
  - OVERDOSE [None]
